FAERS Safety Report 6377024-0 (Version None)
Quarter: 2009Q3

REPORT INFORMATION
  Report Type: 
  Country: None (occurrence: None)
  Receive Date: 20090925
  Receipt Date: 20090922
  Transmission Date: 20100115
  Serious: Yes (Hospitalization)
  Sender: FDA-Public Use
  Company Number: US-JNJFOC-20090809177

PATIENT
  Sex: Female
  Weight: 86.64 kg

DRUGS (12)
  1. DOXIL [Suspect]
     Indication: MULTIPLE MYELOMA
     Dosage: 62MG TOTAL
     Route: 042
  2. DEXAMETHASONE 4MG TAB [Suspect]
     Indication: MULTIPLE MYELOMA
     Route: 048
  3. VELCADE [Suspect]
     Indication: MULTIPLE MYELOMA
     Dosage: 1.44MG TOTAL
     Route: 042
  4. COUMADIN [Suspect]
     Indication: DRUG USE FOR UNKNOWN INDICATION
  5. NEURONTIN [Concomitant]
     Indication: NEUROPATHY PERIPHERAL
     Route: 048
  6. LACTULOSE [Concomitant]
     Indication: CONSTIPATION
     Route: 048
  7. DOXYCYCLINE [Concomitant]
     Route: 048
  8. DOXYCYCLINE [Concomitant]
     Indication: INFECTION
     Route: 048
  9. REGLAN [Concomitant]
     Indication: CONSTIPATION
     Route: 048
  10. COLACE [Concomitant]
     Indication: CONSTIPATION
     Route: 048
  11. MEDROL [Concomitant]
     Indication: INFECTION
     Route: 048
  12. COUMADIN [Concomitant]
     Route: 065

REACTIONS (2)
  - ABDOMINAL PAIN [None]
  - INTERNATIONAL NORMALISED RATIO INCREASED [None]
